FAERS Safety Report 23332059 (Version 1)
Quarter: 2023Q4

REPORT INFORMATION
  Report Type: Report from Study
  Country: US (occurrence: US)
  Receive Date: 20231222
  Receipt Date: 20231222
  Transmission Date: 20240110
  Serious: Yes (Hospitalization)
  Sender: FDA-Public Use
  Company Number: US-PFIZER INC-PV202300205182

PATIENT
  Age: 21 Year
  Sex: Female

DRUGS (2)
  1. IBRANCE [Suspect]
     Active Substance: PALBOCICLIB
     Indication: Ovarian cancer
     Dosage: [125 MG TABLET ONCE DAILY BY MOUTH FOR 21 DAYS OFF 7 FOR 28-DAY CYCLE]
     Route: 048
     Dates: start: 20121212
  2. IBRANCE [Suspect]
     Active Substance: PALBOCICLIB
     Dosage: [125 MG TABLET ONCE DAILY BY MOUTH FOR 21 DAYS OFF 7 FOR 28- DAY CYCLE]
     Route: 048
     Dates: start: 20231116, end: 20231211

REACTIONS (4)
  - Urinary bladder haemorrhage [Recovered/Resolved]
  - Epistaxis [Recovered/Resolved]
  - Renal impairment [Not Recovered/Not Resolved]
  - Condition aggravated [Not Recovered/Not Resolved]

NARRATIVE: CASE EVENT DATE: 20231201
